FAERS Safety Report 21831755 (Version 1)
Quarter: 2023Q1

REPORT INFORMATION
  Report Type: Spontaneous
  Country: US (occurrence: US)
  Receive Date: 20230106
  Receipt Date: 20230106
  Transmission Date: 20230417
  Serious: Yes (Other)
  Sender: FDA-Public Use
  Company Number: US-PFIZER INC-PV202300002673

PATIENT
  Sex: Male

DRUGS (1)
  1. PALBOCICLIB [Suspect]
     Active Substance: PALBOCICLIB
     Indication: Breast cancer male
     Dosage: 75 MG, CYCLIC (DAILY FOR 5 DAYS AND OFF 2 DAYS ON THE 3/1 WEEK)

REACTIONS (2)
  - Neutropenia [Unknown]
  - Off label use [Unknown]
